FAERS Safety Report 9410045 (Version 1)
Quarter: 2013Q3

REPORT INFORMATION
  Report Type: Spontaneous
  Country: IT (occurrence: IT)
  Receive Date: 20130719
  Receipt Date: 20130719
  Transmission Date: 20140515
  Serious: Yes (Death)
  Sender: FDA-Public Use
  Company Number: IT-CUBIST PHARMACEUTICALS, INC.-2013CBST000617

PATIENT
  Sex: 0

DRUGS (14)
  1. CUBICIN [Suspect]
     Indication: ENDOCARDITIS
     Dosage: 350 MG, QD
     Route: 065
  2. CUBICIN [Suspect]
     Indication: ENDOCARDITIS STAPHYLOCOCCAL
  3. CUBICIN [Suspect]
     Indication: OFF LABEL USE
  4. RIFAMPICIN [Concomitant]
     Indication: ENDOCARDITIS
     Dosage: 600 MG, QD
     Route: 065
  5. RIFAMPICIN [Concomitant]
     Indication: ENDOCARDITIS STAPHYLOCOCCAL
  6. TEICOPLANIN [Concomitant]
     Indication: ENDOCARDITIS
     Dosage: 800 MG, QD
     Route: 065
  7. TEICOPLANIN [Concomitant]
     Indication: ENDOCARDITIS STAPHYLOCOCCAL
     Dosage: 400 MG, QD
     Route: 065
  8. TEICOPLANIN [Concomitant]
     Dosage: 200 MG, QD
     Route: 065
  9. GENTAMICIN [Concomitant]
     Indication: ENDOCARDITIS
     Dosage: 80 MG, BID
     Route: 065
  10. GENTAMICIN [Concomitant]
     Indication: ENDOCARDITIS STAPHYLOCOCCAL
     Dosage: 160 MG, QD
     Route: 065
  11. LINEZOLID [Concomitant]
     Indication: ENDOCARDITIS
     Dosage: 600 MG, BID
     Route: 065
  12. LINEZOLID [Concomitant]
     Indication: ENDOCARDITIS STAPHYLOCOCCAL
  13. DALFOPRISTIN W/QUINUPRISTIN [Concomitant]
     Indication: ENDOCARDITIS
     Route: 065
  14. DALFOPRISTIN W/QUINUPRISTIN [Concomitant]
     Indication: ENDOCARDITIS STAPHYLOCOCCAL

REACTIONS (2)
  - Death [Fatal]
  - Antimicrobial susceptibility test resistant [Unknown]
